FAERS Safety Report 8371975 (Version 2)
Quarter: 2013Q1

REPORT INFORMATION
  Report Type: Spontaneous
  Country: PR (occurrence: PR)
  Receive Date: 20120129
  Receipt Date: 20130130
  Transmission Date: 20140127
  Serious: No
  Sender: FDA-Public Use
  Company Number: PR-ABBOTT-11P-131-0881284-00

PATIENT
  Age: 58 Year
  Sex: Female

DRUGS (1)
  1. HUMIRA 40 MG/ 0.8 ML PRE-FILLED SYRINGE [Suspect]
     Indication: PSORIASIS
     Route: 058

REACTIONS (6)
  - Erythema [Unknown]
  - Psoriasis [Unknown]
  - Abdominal pain [Unknown]
  - Pain in extremity [Unknown]
  - Blister [Unknown]
  - Pruritus [Unknown]
